FAERS Safety Report 9232369 (Version 2)
Quarter: 2013Q2

REPORT INFORMATION
  Report Type: Report from Study
  Country: CA (occurrence: CA)
  Receive Date: 20130416
  Receipt Date: 20130614
  Transmission Date: 20140414
  Serious: Yes (Hospitalization)
  Sender: FDA-Public Use
  Company Number: CA-BIOGENIDEC-2013BI033198

PATIENT
  Age: 34 Year
  Sex: Male

DRUGS (1)
  1. TYSABRI [Suspect]
     Indication: RELAPSING-REMITTING MULTIPLE SCLEROSIS
     Route: 042
     Dates: start: 20100827

REACTIONS (3)
  - Rib fracture [Recovered/Resolved]
  - Splenic injury [Recovered/Resolved]
  - Empyema [Recovered/Resolved]
